FAERS Safety Report 20041965 (Version 1)
Quarter: 2021Q4

REPORT INFORMATION
  Report Type: Spontaneous
  Country: US (occurrence: US)
  Receive Date: 20211108
  Receipt Date: 20211108
  Transmission Date: 20220304
  Serious: No
  Sender: FDA-Public Use
  Company Number: US-JNJFOC-20211049704

PATIENT
  Age: 22 Year
  Sex: Female

DRUGS (1)
  1. STELARA [Suspect]
     Active Substance: USTEKINUMAB
     Indication: Crohn^s disease
     Route: 058
     Dates: start: 202106

REACTIONS (2)
  - Pulmonary mass [Unknown]
  - Fungal infection [Unknown]

NARRATIVE: CASE EVENT DATE: 20210101
